FAERS Safety Report 10735467 (Version 1)
Quarter: 2015Q1

REPORT INFORMATION
  Report Type: Spontaneous
  Country: US (occurrence: US)
  Receive Date: 20150126
  Receipt Date: 20150126
  Transmission Date: 20150721
  Serious: No
  Sender: FDA-Public Use
  Company Number: US-ASTRAZENECA-2015SE05316

PATIENT
  Age: 3172 Week
  Sex: Female
  Weight: 66.2 kg

DRUGS (2)
  1. CRESTOR [Suspect]
     Active Substance: ROSUVASTATIN CALCIUM
     Indication: BLOOD CHOLESTEROL INCREASED
     Route: 048
     Dates: end: 20141230
  2. METHYLPREDNISONE [Concomitant]
     Active Substance: METHYLPREDNISOLONE

REACTIONS (7)
  - Hypokinesia [Not Recovered/Not Resolved]
  - Myalgia [Not Recovered/Not Resolved]
  - Activities of daily living impaired [Not Recovered/Not Resolved]
  - Peripheral swelling [Unknown]
  - Condition aggravated [Unknown]
  - Abasia [Unknown]
  - Insomnia [Unknown]

NARRATIVE: CASE EVENT DATE: 20141229
